FAERS Safety Report 7177811-5 (Version None)
Quarter: 2010Q4

REPORT INFORMATION
  Report Type: 
  Country: None (occurrence: None)
  Receive Date: 20101220
  Receipt Date: 20101214
  Transmission Date: 20110411
  Serious: Yes (Hospitalization, Other)
  Sender: FDA-Public Use
  Company Number: PHHO2009CA13183

PATIENT
  Sex: Female
  Weight: 52.4 kg

DRUGS (5)
  1. AFINITOR [Suspect]
     Indication: METASTATIC GASTRIC CANCER
     Dosage: 10MG/DAY
     Route: 048
     Dates: start: 20090924, end: 20091021
  2. AFINITOR [Suspect]
     Dosage: 10MG/DAY
     Route: 048
     Dates: start: 20091105, end: 20091118
  3. SENOKOT [Concomitant]
     Indication: CONSTIPATION
     Dosage: UNK
     Route: 048
     Dates: start: 20070101
  4. OMEPRAZOLE [Concomitant]
     Indication: GASTRITIS
     Dosage: UNK
     Route: 048
     Dates: start: 20070101
  5. CODEINE [Concomitant]
     Indication: ABDOMINAL PAIN
     Dosage: UNK
     Route: 048
     Dates: start: 20070101

REACTIONS (12)
  - ABDOMINAL PAIN LOWER [None]
  - DISCOMFORT [None]
  - DYSPNOEA [None]
  - FATIGUE [None]
  - GASTROINTESTINAL ISCHAEMIA [None]
  - GASTROINTESTINAL ULCER [None]
  - MALAISE [None]
  - MALIGNANT NEOPLASM PROGRESSION [None]
  - MELAENA [None]
  - NAUSEA [None]
  - UPPER GASTROINTESTINAL HAEMORRHAGE [None]
  - VOMITING [None]
